FAERS Safety Report 16847650 (Version 1)
Quarter: 2019Q3

REPORT INFORMATION
  Report Type: Other
  Country: US (occurrence: US)
  Receive Date: 20190924
  Receipt Date: 20190924
  Transmission Date: 20191005
  Serious: No
  Sender: FDA-Public Use
  Company Number: US-ACORDA-ACO_160254_2019

PATIENT
  Age: 78 Year
  Sex: Female

DRUGS (2)
  1. INBRIJA [Suspect]
     Active Substance: LEVODOPA
     Indication: PARKINSON^S DISEASE
     Dosage: 84 MILLIGRAM (2 CAPSULES OF 42MG) UP TO FIVE TIMES PER DAY AS NEEDED
     Dates: start: 20190530, end: 20190715
  2. CARBIDOPA/LEVODOPA [Concomitant]
     Active Substance: CARBIDOPA\LEVODOPA
     Indication: PRODUCT USED FOR UNKNOWN INDICATION
     Dosage: 2 TABS EACH 7.30 AM, 11.15 AM, 3.15 PM AND 6.15 PM
     Route: 065

REACTIONS (3)
  - Cough [Recovered/Resolved]
  - Throat irritation [Recovered/Resolved]
  - Dyspnoea [Unknown]

NARRATIVE: CASE EVENT DATE: 20190715
